FAERS Safety Report 8993413 (Version 5)
Quarter: 2013Q1

REPORT INFORMATION
  Report Type: Spontaneous
  Country: IT (occurrence: IT)
  Receive Date: 20130102
  Receipt Date: 20130307
  Transmission Date: 20140127
  Serious: Yes (Hospitalization)
  Sender: FDA-Public Use
  Company Number: IT-PFIZER INC-2013000572

PATIENT
  Age: 86 Year
  Sex: Male

DRUGS (7)
  1. SERTRALINE HCL [Suspect]
     Indication: DEPRESSION
     Dosage: 25 MG, DAILY
     Route: 048
     Dates: start: 20121215
  2. AMIODAR [Interacting]
     Dosage: 200 MG, DAILY
     Route: 048
     Dates: start: 20070101
  3. COUMADIN [Interacting]
     Dosage: 5 MG, AS NEEDED
     Route: 048
     Dates: start: 20070101, end: 20121221
  4. LASIX [Concomitant]
     Dosage: 25 MG, UNK
  5. DIAMOX [Concomitant]
     Dosage: 250 MG, UNK
  6. LUVION [Concomitant]
     Dosage: 100 MG, UNK
  7. LEVOCARNITINE [Concomitant]
     Dosage: UNK

REACTIONS (3)
  - Drug interaction [Recovered/Resolved]
  - Haematuria [Recovered/Resolved]
  - International normalised ratio increased [Recovered/Resolved]
